FAERS Safety Report 8355189-9 (Version None)
Quarter: 2012Q2

REPORT INFORMATION
  Report Type: 
  Country: None (occurrence: None)
  Receive Date: 20120510
  Receipt Date: 20120501
  Transmission Date: 20120825
  Serious: Yes (Other)
  Sender: FDA-Public Use
  Company Number: CIP-2012-00132

PATIENT
  Age: 5 Year
  Sex: Male

DRUGS (2)
  1. CARBOPLATIN [Suspect]
     Indication: ASTROCYTOMA, LOW GRADE
     Dosage: (175 MG/M2,DAYS 0,7,23,21,42
  2. VINCRISTINE [Suspect]
     Indication: ASTROCYTOMA, LOW GRADE
     Dosage: (1.5 MG/M2, DAYS 0,7,14,21,28,35

REACTIONS (5)
  - ATAXIA [None]
  - COMA [None]
  - HYDROCEPHALUS [None]
  - NEUROLOGICAL DECOMPENSATION [None]
  - BLINDNESS [None]
